FAERS Safety Report 8168670-2 (Version None)
Quarter: 2012Q1

REPORT INFORMATION
  Report Type: 
  Country: None (occurrence: None)
  Receive Date: 20120227
  Receipt Date: 20120222
  Transmission Date: 20120608
  Serious: Yes (Other)
  Sender: FDA-Public Use
  Company Number: JP-PFIZER INC-2012018573

PATIENT
  Age: 69 Year
  Sex: Male

DRUGS (2)
  1. XALATAN [Suspect]
     Indication: GLAUCOMA
     Dosage: UNK
     Route: 047
     Dates: start: 20110323, end: 20111220
  2. SANCOBA [Concomitant]
     Dosage: UNK

REACTIONS (1)
  - VISUAL ACUITY REDUCED [None]
